FAERS Safety Report 15690621 (Version 1)
Quarter: 2018Q4

REPORT INFORMATION
  Report Type: Spontaneous
  Country: JP (occurrence: JP)
  Receive Date: 20181205
  Receipt Date: 20181205
  Transmission Date: 20190205
  Serious: Yes (Hospitalization)
  Sender: FDA-Public Use
  Company Number: JP-INCYTE CORPORATION-2018IN012245

PATIENT

DRUGS (5)
  1. L-PAM [Concomitant]
     Active Substance: MELPHALAN
     Indication: TRANSPLANT
     Dosage: 70 MG/M2, UNK
     Route: 065
  2. JAKAVI [Suspect]
     Active Substance: RUXOLITINIB
     Indication: PRIMARY MYELOFIBROSIS
     Dosage: UNK
     Route: 048
  3. TACROLIMUS. [Concomitant]
     Active Substance: TACROLIMUS
     Indication: PROPHYLAXIS AGAINST GRAFT VERSUS HOST DISEASE
     Dosage: UNK
     Route: 065
  4. METHOTREXATE. [Concomitant]
     Active Substance: METHOTREXATE
     Indication: PROPHYLAXIS AGAINST GRAFT VERSUS HOST DISEASE
     Dosage: UNK
     Route: 065
  5. FLUDARABINE [Concomitant]
     Active Substance: FLUDARABINE PHOSPHATE
     Indication: TRANSPLANT
     Dosage: 30 MG/M2, UNK
     Route: 065

REACTIONS (5)
  - Oesophageal varices haemorrhage [Unknown]
  - Gastric varices haemorrhage [Unknown]
  - Concomitant disease aggravated [Unknown]
  - Portal vein pressure increased [Unknown]
  - Splenomegaly [Unknown]
